FAERS Safety Report 13511257 (Version 2)
Quarter: 2017Q2

REPORT INFORMATION
  Report Type: Spontaneous
  Country: US (occurrence: US)
  Receive Date: 20170503
  Receipt Date: 20170519
  Transmission Date: 20170830
  Serious: No
  Sender: FDA-Public Use
  Company Number: US-TAKEDA-2017TUS009295

PATIENT
  Sex: Male
  Weight: 182 kg

DRUGS (2)
  1. ENTYVIO [Suspect]
     Active Substance: VEDOLIZUMAB
     Indication: COLITIS ULCERATIVE
     Dosage: 300 MG, UNK
     Route: 042
     Dates: start: 20170213, end: 20170329
  2. PENTASA [Concomitant]
     Active Substance: MESALAMINE
     Dosage: 500 MG, QD

REACTIONS (3)
  - Myalgia [Unknown]
  - Herpes zoster [Unknown]
  - Arthralgia [Unknown]
